FAERS Safety Report 24755471 (Version 6)
Quarter: 2025Q2

REPORT INFORMATION
  Report Type: Spontaneous
  Country: JP (occurrence: JP)
  Receive Date: 20241219
  Receipt Date: 20250418
  Transmission Date: 20250717
  Serious: Yes (Death, Hospitalization, Other)
  Sender: AMGEN
  Company Number: JP-KYOWAKIRIN-2024KK027687

PATIENT
  Age: 86 Year
  Sex: Male

DRUGS (3)
  1. ROMIPLOSTIM [Suspect]
     Active Substance: ROMIPLOSTIM
     Indication: Aplastic anaemia
     Dosage: 1000 UG, 1X/WEEK
     Route: 058
     Dates: start: 20220201, end: 20241203
  2. CARVEDILOL [Concomitant]
     Active Substance: CARVEDILOL
     Indication: Cardiac failure
     Dosage: 1.25 MG, BID
     Route: 048
     Dates: start: 20230201
  3. TORSEMIDE [Concomitant]
     Active Substance: TORSEMIDE
     Indication: Cardiac failure
     Dosage: 8 MG, QD
     Route: 048
     Dates: start: 20230204

REACTIONS (4)
  - Asthenia [Fatal]
  - Myelodysplastic syndrome [Not Recovered/Not Resolved]
  - Cardiac failure [Recovering/Resolving]
  - Haemochromatosis [Not Recovered/Not Resolved]

NARRATIVE: CASE EVENT DATE: 20230101
